FAERS Safety Report 5466132-4 (Version None)
Quarter: 2007Q3

REPORT INFORMATION
  Report Type: 
  Country: None (occurrence: None)
  Receive Date: 20070924
  Receipt Date: 20070917
  Transmission Date: 20080115
  Serious: Yes (Hospitalization, Other)
  Sender: FDA-Public Use
  Company Number: US-PFIZER INC-2006119170

PATIENT
  Sex: Female
  Weight: 62.6 kg

DRUGS (6)
  1. BEXTRA [Suspect]
     Indication: PAIN
  2. VIOXX [Suspect]
     Indication: PAIN
     Route: 048
     Dates: start: 20000204, end: 20021011
  3. PHRENILIN [Concomitant]
     Dates: start: 20020128, end: 20030619
  4. ESGIC [Concomitant]
     Dates: start: 20000204, end: 20050909
  5. HYDROCODONE BITARTRATE [Concomitant]
     Dates: start: 19990818, end: 20041210
  6. PROPACET 100 [Concomitant]
     Dates: start: 19990930, end: 20060423

REACTIONS (1)
  - CEREBROVASCULAR ACCIDENT [None]
